FAERS Safety Report 5634422-8 (Version None)
Quarter: 2008Q1

REPORT INFORMATION
  Report Type: 
  Country: None (occurrence: None)
  Receive Date: 20080131
  Receipt Date: 20070108
  Transmission Date: 20080703
  Serious: Yes (Other)
  Sender: FDA-Public Use
  Company Number: 145727USA

PATIENT
  Age: 38 Year
  Sex: Female
  Weight: 42.6 kg

DRUGS (2)
  1. COPAXONE [Suspect]
     Indication: MULTIPLE SCLEROSIS
     Dosage: 20 MG (20 MG,ONCE A DAY), SUBCUTANEOUS
     Route: 058
     Dates: start: 20060202
  2. INTERFERON BETA-1A [Suspect]
     Dosage: 44 MCG (3 IN 1 WK), SUBCUTANEOUS
     Route: 058
     Dates: start: 20050607, end: 20060117

REACTIONS (1)
  - NON-SMALL CELL LUNG CANCER STAGE IIIB [None]
